FAERS Safety Report 7630549-X (Version None)
Quarter: 2011Q3

REPORT INFORMATION
  Report Type: 
  Country: None (occurrence: None)
  Receive Date: 20110722
  Receipt Date: 20110712
  Transmission Date: 20111222
  Serious: Yes (Other)
  Sender: FDA-Public Use
  Company Number: PHHY2011CA63586

PATIENT
  Sex: Female

DRUGS (6)
  1. ZOLEDRONOC ACID [Suspect]
     Dosage: 5 MG
     Route: 042
     Dates: start: 20100609
  2. VITAMIN D [Concomitant]
  3. ZOLEDRONOC ACID [Suspect]
     Indication: OSTEOPOROSIS
     Dosage: 5 MG
     Route: 042
     Dates: start: 20090529
  4. LIPITOR [Concomitant]
  5. SYNTHROID [Concomitant]
  6. CALCIUM CARBONATE [Concomitant]

REACTIONS (1)
  - BREAST CANCER [None]
